FAERS Safety Report 24739095 (Version 1)
Quarter: 2024Q4

REPORT INFORMATION
  Report Type: Spontaneous
  Country: US (occurrence: None)
  Receive Date: 20241216
  Receipt Date: 20241216
  Transmission Date: 20250115
  Serious: Yes (Other)
  Sender: Public
  Company Number: None

PATIENT
  Sex: Female

DRUGS (10)
  1. CIMZIA [Suspect]
     Active Substance: CERTOLIZUMAB PEGOL
     Indication: Rheumatoid arthritis
     Dosage: OTHER FREQUENCY : EVERY14DAYS ;?
     Route: 058
     Dates: start: 20240409
  2. ACETAMINOPHEN\HYDROCODONE [Concomitant]
     Active Substance: ACETAMINOPHEN\HYDROCODONE
  3. LAMOTRIGINE TAB 25MG [Concomitant]
  4. LEVOTHYROXIN TAB 88MCG [Concomitant]
  5. METFORMIN TAB 500MG ER [Concomitant]
  6. METHYLPRED TAB4MG [Concomitant]
  7. QUETIAPINE [Concomitant]
     Active Substance: QUETIAPINE
  8. QUETIAPINE TAB SOMG [Concomitant]
  9. SERTRALINE TAB SOMG [Concomitant]
  10. VRAYLAR CAP 1.5MG [Concomitant]

REACTIONS (3)
  - Rheumatoid arthritis [None]
  - Loss of personal independence in daily activities [None]
  - Intentional dose omission [None]
